FAERS Safety Report 4647354-9 (Version None)
Quarter: 2005Q2

REPORT INFORMATION
  Report Type: 
  Country: None (occurrence: None)
  Receive Date: 20050426
  Receipt Date: 20050426
  Transmission Date: 20051028
  Serious: Yes (Death)
  Sender: FDA-Public Use
  Company Number: None

PATIENT
  Age: 52 Year
  Sex: Male
  Weight: 77.1115 kg

DRUGS (10)
  1. CAMPRAL [Suspect]
     Indication: ALCOHOLISM
     Dosage: 666MG   TID ORAL
     Route: 048
     Dates: start: 20050408, end: 20050413
  2. CHLORDIAZEPOXIDE [Concomitant]
     Indication: PROPHYLAXIS
  3. SETRALINE [Concomitant]
  4. OLANZAPINE [Concomitant]
  5. NICOTINE [Concomitant]
  6. MULTI-VITAMIN [Concomitant]
  7. FOLIC ACID [Concomitant]
  8. THIAMINE [Concomitant]
  9. CLONIDINE [Concomitant]
  10. TEMAZEPAM [Concomitant]

REACTIONS (3)
  - ALCOHOL DETOXIFICATION [None]
  - COMPLETED SUICIDE [None]
  - DEPRESSION [None]
